FAERS Safety Report 20679257 (Version 1)
Quarter: 2022Q2

REPORT INFORMATION
  Report Type: Spontaneous
  Country: US (occurrence: US)
  Receive Date: 20220406
  Receipt Date: 20220406
  Transmission Date: 20220721
  Serious: No
  Sender: FDA-Public Use
  Company Number: US-PERRIGO-21US003339

PATIENT
  Age: 59 Year
  Sex: Male
  Weight: 81.633 kg

DRUGS (4)
  1. PSEUDOEPHEDRINE HYDROCHLORIDE [Suspect]
     Active Substance: PSEUDOEPHEDRINE HYDROCHLORIDE
     Indication: Sinus congestion
     Dosage: 120 MG, BID PRN
     Route: 048
     Dates: end: 2020
  2. PSEUDOEPHEDRINE HYDROCHLORIDE [Suspect]
     Active Substance: PSEUDOEPHEDRINE HYDROCHLORIDE
     Indication: Paranasal sinus discomfort
  3. PHENYLEPHRINE [Concomitant]
     Active Substance: PHENYLEPHRINE HYDROCHLORIDE
     Indication: Sinus congestion
     Dosage: 10 MG
     Route: 065
     Dates: start: 2020
  4. PHENYLEPHRINE [Concomitant]
     Active Substance: PHENYLEPHRINE HYDROCHLORIDE
     Indication: Paranasal sinus discomfort

REACTIONS (2)
  - Urine flow decreased [Recovered/Resolved]
  - Expired product administered [Recovered/Resolved]
